FAERS Safety Report 7878427-5 (Version None)
Quarter: 2011Q4

REPORT INFORMATION
  Report Type: 
  Country: None (occurrence: None)
  Receive Date: 20111028
  Receipt Date: 20111018
  Transmission Date: 20120403
  Serious: Yes (Hospitalization)
  Sender: FDA-Public Use
  Company Number: 11-650

PATIENT
  Age: 37 Year
  Sex: Male

DRUGS (3)
  1. IBUPROFEN [Suspect]
     Indication: BACK PAIN
     Dosage: 400 MG, TID, ORAL
     Route: 048
     Dates: start: 20110601, end: 20110930
  2. DICLOFENAC SODIUM [Suspect]
     Indication: BACK PAIN
     Dosage: 50 MG, TID, ORAL
     Route: 048
     Dates: start: 20090501, end: 20110930
  3. AMITRIPTYLINE HCL [Concomitant]

REACTIONS (5)
  - PEPTIC ULCER [None]
  - HELICOBACTER TEST POSITIVE [None]
  - MELAENA [None]
  - DUODENITIS [None]
  - GASTRITIS [None]
